FAERS Safety Report 6438751-X (Version None)
Quarter: 2009Q4

REPORT INFORMATION
  Report Type: 
  Country: None (occurrence: None)
  Receive Date: 20091113
  Receipt Date: 20091103
  Transmission Date: 20100525
  Serious: Yes (Other)
  Sender: FDA-Public Use
  Company Number: DE-JNJFOC-20091101787

PATIENT
  Age: 48 Year
  Sex: Male

DRUGS (1)
  1. DOXORUBICIN HYDROCHLORIDE [Suspect]
     Indication: MYCOSIS FUNGOIDES
     Route: 042

REACTIONS (2)
  - MYCOSIS FUNGOIDES [None]
  - OFF LABEL USE [None]
